FAERS Safety Report 8869775 (Version 1)
Quarter: 2012Q4

REPORT INFORMATION
  Report Type: Spontaneous
  Country: US (occurrence: None)
  Receive Date: 20121025
  Receipt Date: 20121025
  Transmission Date: 20130627
  Serious: No
  Sender: FDA-Public Use
  Company Number: None

PATIENT
  Age: 59 Year
  Sex: Female
  Weight: 54.43 kg

DRUGS (1)
  1. DYSPORT [Suspect]
     Indication: FROWN LINES
     Dosage: 60 units once sq
     Route: 058
     Dates: start: 20120613, end: 20120613

REACTIONS (3)
  - Headache [None]
  - Hyperaesthesia [None]
  - Ill-defined disorder [None]
